FAERS Safety Report 11990723 (Version 1)
Quarter: 2016Q1

REPORT INFORMATION
  Report Type: Spontaneous
  Country: US (occurrence: US)
  Receive Date: 20160202
  Receipt Date: 20160202
  Transmission Date: 20160526
  Serious: No
  Sender: FDA-Public Use
  Company Number: US-GALDERMA-US15000318

PATIENT
  Age: 17 Year
  Sex: Male

DRUGS (2)
  1. CLEAN AND CLEAR DEEP ACTION EXFOLIATING SCRUB [Concomitant]
     Indication: ACNE
     Route: 061
     Dates: start: 20140711, end: 20140821
  2. EPIDUO [Suspect]
     Active Substance: ADAPALENE\BENZOYL PEROXIDE
     Indication: ACNE
     Dosage: 0.1%/2.5%
     Route: 061
     Dates: start: 2014

REACTIONS (1)
  - Acne [Recovering/Resolving]

NARRATIVE: CASE EVENT DATE: 2014
